FAERS Safety Report 16592085 (Version 2)
Quarter: 2019Q3

REPORT INFORMATION
  Report Type: Spontaneous
  Country: US (occurrence: US)
  Receive Date: 20190718
  Receipt Date: 20190724
  Transmission Date: 20191004
  Serious: Yes (Hospitalization, Other)
  Sender: FDA-Public Use
  Company Number: US-MYLANLABS-2019M1066880

PATIENT
  Age: 28 Year
  Sex: Male

DRUGS (1)
  1. TRIAMCINOLONE [Suspect]
     Active Substance: TRIAMCINOLONE
     Indication: EYE INFLAMMATION
     Route: 047

REACTIONS (5)
  - Retinal haemorrhage [Recovered/Resolved]
  - Visual impairment [Recovered/Resolved]
  - Chorioretinal scar [Not Recovered/Not Resolved]
  - Vitreous haemorrhage [Recovered/Resolved]
  - Wrong technique in product usage process [Recovered/Resolved]
